FAERS Safety Report 7213479-7 (Version None)
Quarter: 2011Q1

REPORT INFORMATION
  Report Type: 
  Country: None (occurrence: None)
  Receive Date: 20110106
  Receipt Date: 20101223
  Transmission Date: 20110831
  Serious: Yes (Other)
  Sender: FDA-Public Use
  Company Number: PHHY2010GB87588

PATIENT
  Age: 67 Year
  Sex: Female
  Weight: 98 kg

DRUGS (4)
  1. CLARITHROMYCIN [Suspect]
     Indication: FURUNCLE
     Dosage: 500 MG, BID
     Route: 048
     Dates: start: 20101022, end: 20101026
  2. BISOPROLOL [Concomitant]
     Dosage: 2.5 MG, QD
     Route: 048
     Dates: start: 20090316
  3. ESTRADIOL VALERATE [Concomitant]
     Dosage: 1 MG, QD
     Dates: start: 19940101
  4. FUROSEMIDE [Concomitant]
     Dosage: UNK

REACTIONS (4)
  - ARTHRALGIA [None]
  - MYALGIA [None]
  - GAIT DISTURBANCE [None]
  - BACK PAIN [None]
